FAERS Safety Report 9247770 (Version 1)
Quarter: 2013Q2

REPORT INFORMATION
  Report Type: Spontaneous
  Country: US (occurrence: US)
  Receive Date: 20130423
  Receipt Date: 20130423
  Transmission Date: 20140414
  Serious: Yes (Life-Threatening, Hospitalization)
  Sender: FDA-Public Use
  Company Number: US-ASTRAZENECA-2013SE24708

PATIENT
  Age: 23564 Day
  Sex: Female
  Weight: 103.9 kg

DRUGS (13)
  1. LOVENOX [Suspect]
     Dosage: DAILY
     Route: 058
  2. IRESSA [Suspect]
     Indication: BREAST CANCER
     Route: 048
     Dates: start: 20060810
  3. ARIMIDEX [Suspect]
     Indication: BREAST CANCER
     Route: 048
     Dates: start: 20060810
  4. ALEVE [Concomitant]
     Route: 048
  5. CALTRATE [Concomitant]
     Route: 048
  6. CELEBREX [Concomitant]
     Route: 048
  7. LASIX [Concomitant]
     Route: 048
  8. NEURONTIN [Concomitant]
     Route: 048
  9. VIT D3 [Concomitant]
     Route: 048
  10. LISINOPRIL [Concomitant]
     Route: 048
  11. ROPINEZOLE [Concomitant]
     Route: 048
  12. TEMAZEPAM [Concomitant]
     Route: 048
  13. TRAMADOL [Concomitant]
     Dosage: 50-100 MG, AS NEEDED AT NIGHT
     Route: 048

REACTIONS (2)
  - Haematemesis [Recovered/Resolved]
  - Diarrhoea haemorrhagic [Recovered/Resolved]
